FAERS Safety Report 5121656-4 (Version None)
Quarter: 2006Q4

REPORT INFORMATION
  Report Type: 
  Country: None (occurrence: None)
  Receive Date: 20061006
  Receipt Date: 20060928
  Transmission Date: 20070319
  Serious: Yes (Hospitalization)
  Sender: FDA-Public Use
  Company Number: US-JNJFOC-20061000170

PATIENT
  Sex: Female
  Weight: 86.18 kg

DRUGS (2)
  1. FENTANYL TRANSDERMAL SYSTEM [Suspect]
     Indication: PAIN MANAGEMENT
     Route: 062
  2. FENTANYL TRANSDERMAL SYSTEM [Suspect]
     Indication: ARTHRALGIA
     Route: 062

REACTIONS (6)
  - APPLICATION SITE PRURITUS [None]
  - APPLICATION SITE VESICLES [None]
  - BLOOD PRESSURE INCREASED [None]
  - PAIN [None]
  - SEPSIS [None]
  - STAPHYLOCOCCAL INFECTION [None]
